FAERS Safety Report 6539921-2 (Version None)
Quarter: 2010Q1

REPORT INFORMATION
  Report Type: 
  Country: None (occurrence: None)
  Receive Date: 20100115
  Receipt Date: 20100104
  Transmission Date: 20100710
  Serious: Yes (Other)
  Sender: FDA-Public Use
  Company Number: BR-ELI_LILLY_AND_COMPANY-BR201001000566

PATIENT
  Sex: Male

DRUGS (2)
  1. CIALIS [Suspect]
     Indication: PENIS DISORDER
     Dosage: UNK, UNKNOWN
     Route: 065
  2. VIAGRA [Concomitant]
     Dosage: UNK, UNKNOWN
     Route: 065

REACTIONS (5)
  - ABDOMINAL HERNIA [None]
  - ANXIETY [None]
  - DRUG INEFFECTIVE [None]
  - ERECTILE DYSFUNCTION [None]
  - PROSTATE CANCER [None]
